FAERS Safety Report 4724943-4 (Version None)
Quarter: 2005Q3

REPORT INFORMATION
  Report Type: 
  Country: None (occurrence: None)
  Receive Date: 20050721
  Receipt Date: 20050712
  Transmission Date: 20060218
  Serious: Yes (Hospitalization, Other)
  Sender: FDA-Public Use
  Company Number: 2005100342

PATIENT
  Age: 69 Year
  Sex: Male

DRUGS (10)
  1. PREDNISONE [Suspect]
     Indication: POLYMYALGIA RHEUMATICA
     Dosage: (10 MG), ORAL
     Route: 048
  2. WARFARIN SODIUM [Suspect]
     Indication: PROPHYLAXIS
     Dosage: (2.5 MG), ORAL
     Route: 048
  3. SIMVASTATIN [Concomitant]
  4. FOLACIN (CALCIUM PHOSPHATE, FOLIC ACID) [Concomitant]
  5. BEHEPAN (CYANCOBALAMIN) [Concomitant]
  6. IMPUGAN (FUOSEMIDE) [Concomitant]
  7. MINDIAB (GLIPIZIDE) [Concomitant]
  8. SPIRONOLACTONE [Concomitant]
  9. SELOKEN ZOC (METOPROLOL SUCCINATE) [Concomitant]
  10. COZAAR [Concomitant]

REACTIONS (4)
  - DIARRHOEA [None]
  - INTERNATIONAL NORMALISED RATIO DECREASED [None]
  - PAIN [None]
  - RECTAL HAEMORRHAGE [None]
